FAERS Safety Report 10918703 (Version 2)
Quarter: 2015Q3

REPORT INFORMATION
  Report Type: Spontaneous
  Country: US (occurrence: US)
  Receive Date: 20150316
  Receipt Date: 20150914
  Transmission Date: 20151125
  Serious: No
  Sender: FDA-Public Use
  Company Number: US-ASTELLAS-2015US005042

PATIENT
  Sex: Male

DRUGS (1)
  1. XTANDI [Suspect]
     Active Substance: ENZALUTAMIDE
     Indication: PROSTATE CANCER
     Dosage: 160 MG, (4 ? 40 MG) ONCE DAILY
     Route: 048
     Dates: start: 20150114

REACTIONS (4)
  - Fatigue [Unknown]
  - Neck pain [Unknown]
  - Nausea [Unknown]
  - Balance disorder [Unknown]
